FAERS Safety Report 7409697-5 (Version None)
Quarter: 2011Q2

REPORT INFORMATION
  Report Type: 
  Country: None (occurrence: None)
  Receive Date: 20110407
  Receipt Date: 20110407
  Transmission Date: 20111010
  Serious: No
  Sender: FDA-Public Use
  Company Number: None

PATIENT
  Age: 68 Year
  Sex: Male
  Weight: 101.6057 kg

DRUGS (2)
  1. LUNESTA [Suspect]
     Indication: INSOMNIA
     Dosage: 2MG 1 AT NIGHT PO
     Route: 048
     Dates: start: 20110403, end: 20110404
  2. LUNESTA [Suspect]

REACTIONS (3)
  - DRUG INEFFECTIVE [None]
  - HEADACHE [None]
  - PRODUCT TASTE ABNORMAL [None]
